FAERS Safety Report 5907946-3 (Version None)
Quarter: 2008Q4

REPORT INFORMATION
  Report Type: 
  Country: None (occurrence: None)
  Receive Date: 20081003
  Receipt Date: 20080923
  Transmission Date: 20090506
  Serious: Yes (Other)
  Sender: FDA-Public Use
  Company Number: DE-PFIZER INC-2008073539

PATIENT
  Sex: Female

DRUGS (1)
  1. LYRICA [Suspect]
     Indication: NEURALGIA
     Route: 048

REACTIONS (1)
  - BREAST CANCER [None]
